FAERS Safety Report 20958045 (Version 1)
Quarter: 2022Q2

REPORT INFORMATION
  Report Type: Spontaneous
  Country: US (occurrence: None)
  Receive Date: 20220614
  Receipt Date: 20220614
  Transmission Date: 20220721
  Serious: Yes (Hospitalization)
  Sender: FDA-Public Use
  Company Number: None

PATIENT
  Age: 62 Year
  Sex: Female

DRUGS (10)
  1. GLATIRAMER ACETATE [Suspect]
     Active Substance: GLATIRAMER ACETATE
     Indication: Multiple sclerosis
     Dosage: FREQUENCY : AS DIRECTED;?
     Route: 058
     Dates: start: 20190118
  2. ALPRAZOLAM TAB [Concomitant]
  3. ATENOLOL [Concomitant]
     Active Substance: ATENOLOL
  4. BACLOFEN [Concomitant]
     Active Substance: BACLOFEN
  5. MINERALS\VITAMINS [Concomitant]
     Active Substance: MINERALS\VITAMINS
  6. DULOXETINE [Concomitant]
     Active Substance: DULOXETINE
  7. GABAPENTIN TAB [Concomitant]
  8. LEVOTHYROXIN TAB [Concomitant]
  9. PROVIGIL TAB [Concomitant]
  10. SIMVASTATIN [Concomitant]
     Active Substance: SIMVASTATIN

REACTIONS (2)
  - Lower limb fracture [None]
  - Therapy interrupted [None]

NARRATIVE: CASE EVENT DATE: 20220606
